FAERS Safety Report 15972604 (Version 4)
Quarter: 2019Q2

REPORT INFORMATION
  Report Type: Spontaneous
  Country: JP (occurrence: JP)
  Receive Date: 20190216
  Receipt Date: 20190628
  Transmission Date: 20190711
  Serious: Yes (Life-Threatening)
  Sender: FDA-Public Use
  Company Number: JP-ROCHE-2264812

PATIENT
  Age: 58 Year
  Sex: Female

DRUGS (4)
  1. XOFLUZA [Suspect]
     Active Substance: BALOXAVIR MARBOXIL
     Indication: INFLUENZA
     Route: 048
     Dates: start: 20190206, end: 20190206
  2. NAUZELIN [Concomitant]
     Active Substance: DOMPERIDONE
     Indication: INFLUENZA
     Route: 065
     Dates: start: 20190206, end: 20190206
  3. CALONAL [Concomitant]
     Active Substance: ACETAMINOPHEN
     Indication: INFLUENZA
     Route: 065
     Dates: start: 20190206, end: 20190206
  4. REBAMIPIDE [Concomitant]
     Active Substance: REBAMIPIDE
     Indication: INFLUENZA
     Route: 065
     Dates: start: 20190206, end: 20190206

REACTIONS (2)
  - Stevens-Johnson syndrome [Recovered/Resolved]
  - Anaphylactic shock [Recovered/Resolved]

NARRATIVE: CASE EVENT DATE: 20190206
